FAERS Safety Report 8593137-7 (Version None)
Quarter: 2012Q3

REPORT INFORMATION
  Report Type: 
  Country: None (occurrence: None)
  Receive Date: 20120814
  Receipt Date: 20120808
  Transmission Date: 20120928
  Serious: Yes (Other)
  Sender: FDA-Public Use
  Company Number: JP-VERTEX PHARMACEUTICALS INC.-AE-2012-007472

PATIENT
  Age: 43 Year
  Sex: Female

DRUGS (7)
  1. TELAVIC [Suspect]
     Indication: HEPATITIS C
     Route: 048
     Dates: start: 20120403
  2. PEG-INTRON [Concomitant]
     Indication: HEPATITIS C
     Route: 058
     Dates: start: 20120403
  3. MUCOSTA [Concomitant]
     Route: 048
     Dates: start: 20120407
  4. REBETOL [Concomitant]
     Indication: HEPATITIS C
     Route: 048
     Dates: start: 20120403, end: 20120522
  5. REBETOL [Concomitant]
     Route: 048
     Dates: start: 20120523
  6. MUCOSTA [Concomitant]
     Route: 048
  7. PREDNISOLONE [Concomitant]
     Indication: VIITH NERVE PARALYSIS
     Route: 048
     Dates: start: 20120420

REACTIONS (1)
  - VIITH NERVE PARALYSIS [None]
